FAERS Safety Report 18287943 (Version 1)
Quarter: 2020Q3

REPORT INFORMATION
  Report Type: Spontaneous
  Country: US (occurrence: US)
  Receive Date: 20200918
  Receipt Date: 20200918
  Transmission Date: 20201103
  Serious: Yes (Death)
  Sender: FDA-Public Use
  Company Number: None

PATIENT
  Age: 49 Year
  Sex: Female

DRUGS (7)
  1. DIAZEPAM. [Concomitant]
     Active Substance: DIAZEPAM
  2. BIOFREEZE [Concomitant]
     Active Substance: MENTHOL
  3. VYVANSE [Concomitant]
     Active Substance: LISDEXAMFETAMINE DIMESYLATE
  4. DULOXETINE. [Concomitant]
     Active Substance: DULOXETINE
  5. METOPROL SUC [Concomitant]
  6. OXYCONTIN [Concomitant]
     Active Substance: OXYCODONE HYDROCHLORIDE
  7. ZOLEDRONIC [Suspect]
     Active Substance: ZOLEDRONIC ACID
     Indication: LUNG CARCINOMA CELL TYPE UNSPECIFIED STAGE 0
     Route: 042
     Dates: start: 20200818

REACTIONS (1)
  - Death [None]

NARRATIVE: CASE EVENT DATE: 20200914
